FAERS Safety Report 25670697 (Version 3)
Quarter: 2025Q4

REPORT INFORMATION
  Report Type: Spontaneous
  Country: US (occurrence: US)
  Receive Date: 20250812
  Receipt Date: 20251007
  Transmission Date: 20260117
  Serious: Yes (Life-Threatening, Hospitalization, Other)
  Sender: BRACCO
  Company Number: US-BRACCO-2025US05414

PATIENT
  Age: 66 Year
  Sex: Female

DRUGS (3)
  1. ISOVUE 370 [Suspect]
     Active Substance: IOPAMIDOL
     Indication: Computerised tomogram thorax
     Dosage: 100 ML, SINGLE
     Route: 042
     Dates: start: 20250729, end: 20250729
  2. LUMASON [Concomitant]
     Active Substance: SULFUR HEXAFLUORIDE
  3. OXYGEN [Concomitant]
     Active Substance: OXYGEN
     Dosage: 2 L, UNK
     Dates: start: 20250729

REACTIONS (10)
  - Unresponsive to stimuli [Recovered/Resolved]
  - Drooling [Recovered/Resolved]
  - Respiratory arrest [Recovered/Resolved]
  - Hypoxia [Recovered/Resolved]
  - Respiratory failure [Recovered/Resolved]
  - Pneumonia [Recovered/Resolved]
  - Cardiac arrest [Recovered/Resolved]
  - Ventricular tachycardia [Recovered/Resolved]
  - Bradycardia [Recovered/Resolved]
  - Torsade de pointes [Recovered/Resolved]

NARRATIVE: CASE EVENT DATE: 20250729
